FAERS Safety Report 25402136 (Version 1)
Quarter: 2025Q2

REPORT INFORMATION
  Report Type: Spontaneous
  Country: FR (occurrence: FR)
  Receive Date: 20250605
  Receipt Date: 20250605
  Transmission Date: 20250716
  Serious: Yes (Hospitalization)
  Sender: PFIZER
  Company Number: None

PATIENT
  Age: 72 Year
  Sex: Male

DRUGS (9)
  1. PACLITAXEL [Suspect]
     Active Substance: PACLITAXEL
     Indication: Adenosquamous cell lung cancer stage IV
     Dosage: 90 MG/M2, WEEKLY (3 WEEKS OUT OF 4 D1 D8 D15 D1 = D28)
     Route: 042
     Dates: start: 20240531, end: 20240802
  2. KEYTRUDA [Concomitant]
     Active Substance: PEMBROLIZUMAB
     Indication: Adenosquamous cell lung cancer stage IV
     Dosage: 200 MG, EVERY 3 WEEKS
     Route: 042
     Dates: start: 20240531
  3. CARBOPLATIN [Concomitant]
     Active Substance: CARBOPLATIN
     Indication: Adenosquamous cell lung cancer stage IV
     Route: 042
     Dates: start: 20240531, end: 20240726
  4. BECLOMETHASONE DIPROPIONATE\FORMOTEROL FUMARATE\GLYCOPYRROLATE [Concomitant]
     Active Substance: BECLOMETHASONE DIPROPIONATE\FORMOTEROL FUMARATE\GLYCOPYRROLATE
     Indication: Bronchitis chronic
     Route: 048
     Dates: start: 20240726
  5. ATORVASTATIN [Concomitant]
     Active Substance: ATORVASTATIN
     Indication: Dyslipidaemia
     Route: 048
  6. ATORVASTATIN [Concomitant]
     Active Substance: ATORVASTATIN
     Route: 048
  7. IVABRADINE [Concomitant]
     Active Substance: IVABRADINE
     Indication: Arteriosclerosis
     Dosage: 5 MG, 2X/DAY (MORNING AND EVENING)
     Route: 048
  8. ACAMPROSATE CALCIUM [Concomitant]
     Active Substance: ACAMPROSATE CALCIUM
     Indication: Alcohol abuse
     Dosage: 10 MG, 3X/DAY (3 TIMES A DAY)
     Route: 048
  9. ACAMPROSATE CALCIUM [Concomitant]
     Active Substance: ACAMPROSATE CALCIUM
     Dosage: 10 MG, 3X/DAY (3 TIMES A DAY)
     Route: 048

REACTIONS (2)
  - Loss of proprioception [Not Recovered/Not Resolved]
  - Off label use [Unknown]

NARRATIVE: CASE EVENT DATE: 20240531
